FAERS Safety Report 7199334-X (Version None)
Quarter: 2010Q4

REPORT INFORMATION
  Report Type: 
  Country: None (occurrence: None)
  Receive Date: 20101228
  Receipt Date: 20101222
  Transmission Date: 20110411
  Serious: Yes (Hospitalization, Other)
  Sender: FDA-Public Use
  Company Number: FR-BRISTOL-MYERS SQUIBB COMPANY-15458458

PATIENT
  Age: 28 Year
  Sex: Female

DRUGS (10)
  1. NIFLURIL CAPS [Suspect]
     Indication: NASOPHARYNGITIS
     Dates: start: 19800101
  2. HICONCIL [Suspect]
     Indication: NASOPHARYNGITIS
     Dates: start: 19800101
  3. ADVIL [Concomitant]
  4. METFORMIN HCL [Concomitant]
  5. COZAAR [Concomitant]
  6. GLICLAZIDE [Concomitant]
  7. CRESTOR [Concomitant]
  8. ZOLPIDEM [Concomitant]
  9. BROMAZEPAM [Concomitant]
  10. RIVOTRIL [Concomitant]

REACTIONS (1)
  - ERYTHEMA MULTIFORME [None]
